FAERS Safety Report 19495427 (Version 5)
Quarter: 2021Q4

REPORT INFORMATION
  Report Type: Report from Study
  Country: GB (occurrence: GB)
  Receive Date: 20210706
  Receipt Date: 20211125
  Transmission Date: 20220304
  Serious: Yes (Other)
  Sender: FDA-Public Use
  Company Number: GB-UCBSA-2021031162

PATIENT
  Age: 58 Year
  Sex: Female
  Weight: 41 kg

DRUGS (5)
  1. CERTOLIZUMAB PEGOL [Suspect]
     Active Substance: CERTOLIZUMAB PEGOL
     Indication: Rheumatoid arthritis
     Dosage: 400 MILLIGRAM, EV 2 WEEKS(QOW)
     Route: 058
     Dates: start: 20160526
  2. CERTOLIZUMAB PEGOL [Suspect]
     Active Substance: CERTOLIZUMAB PEGOL
     Dosage: 200 MILLIGRAM, EV 2 WEEKS(QOW)
     Route: 058
     Dates: start: 201607, end: 202108
  3. ACYCLOVIR [Concomitant]
     Active Substance: ACYCLOVIR
     Indication: Rash pruritic
     Dosage: 800 MILLIGRAM, 5X/DAY
  4. ZEROBASE [PARAFFIN] [Concomitant]
     Indication: Pruritus
  5. PREDNISOLONE [Concomitant]
     Active Substance: PREDNISOLONE
     Indication: Rheumatoid arthritis

REACTIONS (8)
  - Amnesia [Unknown]
  - Feeling abnormal [Not Recovered/Not Resolved]
  - COVID-19 immunisation [Unknown]
  - Vaccination complication [Recovered/Resolved]
  - Herpes zoster [Unknown]
  - Vaginal haemorrhage [Unknown]
  - Rash pruritic [Recovered/Resolved]
  - Rheumatoid arthritis [Recovered/Resolved]

NARRATIVE: CASE EVENT DATE: 20160526
